FAERS Safety Report 5715593-1 (Version None)
Quarter: 2008Q2

REPORT INFORMATION
  Report Type: 
  Country: None (occurrence: None)
  Receive Date: 20080423
  Receipt Date: 20080423
  Transmission Date: 20081010
  Serious: No
  Sender: FDA-Public Use
  Company Number: None

PATIENT
  Sex: Female
  Weight: 73.5 kg

DRUGS (2)
  1. NEORAL [Suspect]
     Indication: LYMPHOMA
     Dosage: 200MG EVERY 12 HRS. ORAL CONTINUE FOR 6-8 MONTHS TIL TAPERED OFF
     Route: 048
     Dates: start: 20080417
  2. NEORAL [Suspect]
     Indication: TRANSPLANT
     Dosage: 200MG EVERY 12 HRS. ORAL CONTINUE FOR 6-8 MONTHS TIL TAPERED OFF
     Route: 048
     Dates: start: 20080417

REACTIONS (5)
  - DISEASE PROGRESSION [None]
  - NEPHRITIS [None]
  - NEUTROPENIA [None]
  - STAPHYLOCOCCAL BACTERAEMIA [None]
  - STEM CELL TRANSPLANT [None]
